FAERS Safety Report 9717130 (Version 1)
Quarter: 2013Q4

REPORT INFORMATION
  Report Type: Report from Study
  Country: CA (occurrence: CA)
  Receive Date: 20131127
  Receipt Date: 20131127
  Transmission Date: 20140711
  Serious: Yes (Other)
  Sender: FDA-Public Use
  Company Number: CA-JNJFOC-20131114231

PATIENT
  Age: 19 Year
  Sex: Male
  Weight: 80 kg

DRUGS (1)
  1. REMICADE [Suspect]
     Indication: COLITIS ULCERATIVE
     Route: 042
     Dates: start: 20121120

REACTIONS (4)
  - Presyncope [Recovering/Resolving]
  - Infusion related reaction [Recovering/Resolving]
  - Erythema [Recovering/Resolving]
  - Pallor [Recovering/Resolving]
